FAERS Safety Report 25373683 (Version 2)
Quarter: 2025Q2

REPORT INFORMATION
  Report Type: Report from Study
  Country: CA (occurrence: CA)
  Receive Date: 20250529
  Receipt Date: 20250612
  Transmission Date: 20250717
  Serious: Yes (Hospitalization)
  Sender: NOVARTIS
  Company Number: CA-002147023-NVSC2025CA085342

PATIENT
  Age: 68 Year
  Sex: Female

DRUGS (3)
  1. TASIGNA [Suspect]
     Active Substance: NILOTINIB
     Indication: Philadelphia chromosome positive
     Dosage: 450 MG, Q24H
     Route: 048
     Dates: start: 20201110
  2. TASIGNA [Suspect]
     Active Substance: NILOTINIB
     Indication: Chronic myeloid leukaemia
     Dosage: 450 MG, Q12H
     Route: 048
  3. TASIGNA [Suspect]
     Active Substance: NILOTINIB
     Dosage: 450 MG, BID
     Route: 048

REACTIONS (7)
  - Gastric ulcer haemorrhage [Unknown]
  - Decreased appetite [Unknown]
  - Jaundice [Unknown]
  - Yellow skin [Unknown]
  - Ocular icterus [Unknown]
  - Prescribed overdose [Unknown]
  - Off label use [Unknown]
